FAERS Safety Report 5191157-6 (Version None)
Quarter: 2006Q4

REPORT INFORMATION
  Report Type: 
  Country: None (occurrence: None)
  Receive Date: 20061226
  Receipt Date: 20061218
  Transmission Date: 20070319
  Serious: Yes (Death)
  Sender: FDA-Public Use
  Company Number: FR-AVENTIS-200614433FR

PATIENT
  Age: 85 Year
  Sex: Female

DRUGS (10)
  1. LASILIX                            /00032601/ [Suspect]
     Indication: DRUG USE FOR UNKNOWN INDICATION
     Route: 048
  2. LANTUS [Suspect]
     Indication: DIABETES MELLITUS
     Route: 058
  3. ACTRAPID [Suspect]
     Indication: DRUG USE FOR UNKNOWN INDICATION
     Route: 058
  4. CARDENSIEL [Suspect]
     Indication: DRUG USE FOR UNKNOWN INDICATION
     Route: 048
  5. COVERSYL                           /00790701/ [Suspect]
     Indication: DRUG USE FOR UNKNOWN INDICATION
     Route: 048
  6. NOVONORM [Suspect]
     Indication: DRUG USE FOR UNKNOWN INDICATION
     Route: 048
  7. XANAX [Concomitant]
  8. NITRODERM [Concomitant]
     Route: 023
  9. KARDEGIC                           /00002703/ [Concomitant]
     Route: 048
  10. DIFFU K [Concomitant]
     Route: 048

REACTIONS (4)
  - CARDIAC ARREST [None]
  - DEHYDRATION [None]
  - DIABETES MELLITUS INADEQUATE CONTROL [None]
  - DIABETIC COMA [None]
